FAERS Safety Report 8075258-0 (Version None)
Quarter: 2012Q1

REPORT INFORMATION
  Report Type: 
  Country: None (occurrence: None)
  Receive Date: 20120127
  Receipt Date: 20120123
  Transmission Date: 20120608
  Serious: Yes (Hospitalization)
  Sender: FDA-Public Use
  Company Number: US-CELGENEUS-163-21880-11122111

PATIENT
  Sex: Female

DRUGS (15)
  1. FLUCONAZOLE [Concomitant]
     Dosage: 100 MILLIGRAM
     Route: 065
  2. ATENOLOL [Concomitant]
     Indication: HYPERTENSION
     Dosage: 25 MILLIGRAM
     Route: 065
  3. FERROUS SULFATE TAB [Concomitant]
     Route: 065
  4. VITAMIN B-12 [Suspect]
     Route: 048
  5. POTASSIUM CHLORIDE [Concomitant]
     Route: 065
  6. STOOL SOFTENER [Concomitant]
     Indication: CONSTIPATION
     Dosage: 1-2
     Route: 065
  7. CIPROFLOXACIN [Concomitant]
     Route: 065
  8. VELCADE [Concomitant]
     Route: 065
  9. ZOMETA [Concomitant]
     Dosage: 4 MILLIGRAM
     Route: 065
  10. POTASSIUM CHLORIDE [Concomitant]
     Route: 065
  11. VITAMIN D [Concomitant]
     Dosage: 50,000 UNITS
     Route: 065
  12. DECADRON [Concomitant]
     Dosage: 4 MILLIGRAM
     Route: 065
  13. REVLIMID [Suspect]
     Indication: MULTIPLE MYELOMA
     Dosage: 25 MILLIGRAM
     Route: 048
     Dates: start: 20110106, end: 20110930
  14. ASPIRIN [Concomitant]
     Dosage: 81 MILLIGRAM
     Route: 065
  15. CALCIUM CARBONATE [Concomitant]
     Dosage: 1-2
     Route: 065

REACTIONS (2)
  - RENAL FUNCTION TEST ABNORMAL [None]
  - NEPHROLITHIASIS [None]
